FAERS Safety Report 9292419 (Version 1)
Quarter: 2013Q1

REPORT INFORMATION
  Report Type: Spontaneous
  Country: US (occurrence: None)
  Receive Date: 20121212
  Receipt Date: 20121212
  Transmission Date: 20140127
  Serious: No
  Sender: FDA-Public Use
  Company Number: 1210USA008421

PATIENT
  Age: 53 Year
  Sex: Male

DRUGS (11)
  1. VICTRELIS [Suspect]
     Indication: HEPATITIS C
     Route: 048
     Dates: start: 20120910
  2. PEGASYS [Suspect]
  3. RIBASPHERE [Suspect]
  4. CENTRUM (MINERALS (UNSPECIFIED) (+) VITAMINS (UNSPECIFIED)) (MINERALS (UNSPECIFIED), VITAMINS (UNSPECIFIED)) [Concomitant]
  5. ZOLPIDEM TARTRATE (ZOLPIDEM TARTRATE) [Concomitant]
  6. LISINOPRIL (LISINOPRIL) [Concomitant]
  7. PRILOSEC [Concomitant]
  8. CYCLOBENZAPRINE HYDROCHLORIDE (CYCLOBENZAPRINE HYDROCHLORIDE) [Concomitant]
  9. OXYCODONE (OXYCODONE) [Concomitant]
  10. APAP (ACETAMINOPHEN) [Concomitant]
  11. MAGNESIUM (UNSPECIFIED) (MAGNESIUM (UNSPECIFIED)) [Concomitant]

REACTIONS (2)
  - Dyspnoea [None]
  - Depression [None]
